FAERS Safety Report 9507881 (Version 1)
Quarter: 2013Q4

REPORT INFORMATION
  Report Type: Spontaneous
  Country: US (occurrence: None)
  Receive Date: 20130906
  Receipt Date: 20130906
  Transmission Date: 20140711
  Serious: No
  Sender: FDA-Public Use
  Company Number: None

PATIENT
  Age: 78 Year
  Sex: Male
  Weight: 74.44 kg

DRUGS (2)
  1. NAFCILLIN [Suspect]
     Indication: ARTHRITIS BACTERIAL
     Dosage: 12 GRAMS DAILY CONTINUOUS
     Dates: start: 20130607, end: 20130705
  2. NAFCILLIN [Suspect]

REACTIONS (1)
  - Clostridium test positive [None]
